FAERS Safety Report 21120602 (Version 10)
Quarter: 2023Q2

REPORT INFORMATION
  Report Type: Report from Study
  Country: CN (occurrence: CN)
  Receive Date: 20220722
  Receipt Date: 20230619
  Transmission Date: 20230721
  Serious: Yes (Hospitalization, Other)
  Sender: FDA-Public Use
  Company Number: CN-TAKEDA-2022TUS026469

PATIENT
  Age: 26 Year
  Sex: Male
  Weight: 70 kg

DRUGS (44)
  1. BRENTUXIMAB VEDOTIN [Suspect]
     Active Substance: BRENTUXIMAB VEDOTIN
     Indication: Anaplastic large-cell lymphoma
     Dosage: 123 MILLIGRAM, Q3WEEKS
     Route: 041
     Dates: start: 20220411
  2. BRENTUXIMAB VEDOTIN [Suspect]
     Active Substance: BRENTUXIMAB VEDOTIN
     Dosage: 127 MILLIGRAM, Q3WEEKS
     Route: 041
     Dates: start: 20220526
  3. BRENTUXIMAB VEDOTIN [Suspect]
     Active Substance: BRENTUXIMAB VEDOTIN
     Dosage: 125 MILLIGRAM, Q3WEEKS
     Route: 041
     Dates: start: 20220629, end: 20220826
  4. BRENTUXIMAB VEDOTIN [Suspect]
     Active Substance: BRENTUXIMAB VEDOTIN
     Dosage: 123 MILLIGRAM, Q3WEEKS
     Route: 041
     Dates: start: 20220726
  5. BRENTUXIMAB VEDOTIN [Suspect]
     Active Substance: BRENTUXIMAB VEDOTIN
     Dosage: 125 MILLIGRAM, Q3WEEKS
     Route: 041
     Dates: start: 20220826
  6. METOCLOPRAMIDE DIHYDROCHLORIDE [Concomitant]
     Indication: Vomiting
     Dosage: 10 MILLIGRAM
     Route: 030
     Dates: start: 20220402, end: 20220402
  7. PROMETHAZINE HYDROCHLORIDE [Concomitant]
     Active Substance: PROMETHAZINE HYDROCHLORIDE
     Indication: Hypersensitivity
     Dosage: 25 MILLIGRAM
     Route: 030
     Dates: start: 20220411, end: 20220411
  8. SOLU-MEDROL [Concomitant]
     Active Substance: METHYLPREDNISOLONE SODIUM SUCCINATE
     Indication: Hypersensitivity
     Dosage: 40 MILLIGRAM
     Route: 042
     Dates: start: 20220411, end: 20220411
  9. LINEZOLID [Concomitant]
     Active Substance: LINEZOLID
     Indication: Pneumonia
     Dosage: 600 MILLIGRAM
     Route: 042
     Dates: start: 20220329, end: 20220329
  10. MEROPENEM [Concomitant]
     Active Substance: MEROPENEM
     Indication: Pneumonia
     Dosage: 500 MILLIGRAM
     Route: 042
     Dates: start: 20220329, end: 20220329
  11. CEFUROXIME SODIUM [Concomitant]
     Active Substance: CEFUROXIME SODIUM
     Indication: Pneumonia
     Dosage: 0.75 GRAM
     Route: 042
     Dates: start: 20220331, end: 20220331
  12. FLURBIPROFEN AXETIL [Concomitant]
     Active Substance: FLURBIPROFEN AXETIL
     Indication: Pain
     Dosage: 5 MILLILITER
     Route: 042
     Dates: start: 20220331, end: 20220331
  13. MANNATIDE [Concomitant]
     Indication: Prophylaxis
     Dosage: 20 MILLIGRAM
     Route: 042
     Dates: start: 20220402, end: 20220402
  14. KANG AI [Concomitant]
     Indication: Prophylaxis
     Dosage: 60 MILLILITER, QD
     Route: 042
     Dates: start: 20220402, end: 20220417
  15. SODIUM BICARBONATE [Concomitant]
     Active Substance: SODIUM BICARBONATE
     Indication: Supplementation therapy
     Dosage: 125 MILLILITER, QD
     Route: 042
     Dates: start: 20220402, end: 20220417
  16. METHIONINE AND VITAMIN B1 [Concomitant]
     Indication: Hepatitis viral
     Dosage: 40 MILLIGRAM, QD
     Route: 042
     Dates: start: 20220402, end: 20220413
  17. METHIONINE AND VITAMIN B1 [Concomitant]
     Indication: Liver disorder
  18. COMPOUND AMINO ACID CAPSULES (9-5) [Concomitant]
     Indication: Hypoproteinaemia
     Dosage: 250 MILLILITER, QD
     Route: 042
     Dates: start: 20220402, end: 20220404
  19. COMPOUND SODIUM CHLORIDE [CALCIUM CHLORIDE;POTASSIUM CHLORIDE;SODIUM C [Concomitant]
     Indication: Supplementation therapy
     Dosage: 500 MILLILITER
     Route: 042
     Dates: start: 20220402, end: 20220402
  20. POTASSIUM CHLORIDE [Concomitant]
     Active Substance: POTASSIUM CHLORIDE
     Indication: Supplementation therapy
     Dosage: 10 MILLILITER
     Route: 042
     Dates: start: 20220402, end: 20220402
  21. CEFOPERAZONE SODIUM\SULBACTAM SODIUM [Concomitant]
     Active Substance: CEFOPERAZONE SODIUM\SULBACTAM SODIUM
     Indication: Pneumonia
     Dosage: 3 GRAM, Q8HR
     Route: 042
     Dates: start: 20220402, end: 20220417
  22. MAGNESIUM ISOGLYCYRRHIZINATE [Concomitant]
     Active Substance: MAGNESIUM ISOGLYCYRRHIZINATE
     Indication: Hepatitis viral
     Dosage: 200 MILLIGRAM, QD
     Route: 042
     Dates: start: 20220405, end: 20220408
  23. MAGNESIUM ISOGLYCYRRHIZINATE [Concomitant]
     Active Substance: MAGNESIUM ISOGLYCYRRHIZINATE
     Indication: Hepatic function abnormal
  24. CHUANG CHENG [Concomitant]
     Indication: Pneumonia
     Dosage: 250 MILLIGRAM, QD
     Route: 042
     Dates: start: 20220406, end: 20220417
  25. DEXAMETHASONE SODIUM PHOSPHATE [Concomitant]
     Active Substance: DEXAMETHASONE SODIUM PHOSPHATE
     Indication: Lymphoma
     Dosage: 10 MILLIGRAM
     Route: 042
     Dates: start: 20220408, end: 20220408
  26. DEXAMETHASONE SODIUM PHOSPHATE [Concomitant]
     Active Substance: DEXAMETHASONE SODIUM PHOSPHATE
     Indication: Allergy prophylaxis
     Dosage: 5 MILLIGRAM
     Route: 042
     Dates: start: 20220408, end: 20220408
  27. DEXAMETHASONE SODIUM PHOSPHATE [Concomitant]
     Active Substance: DEXAMETHASONE SODIUM PHOSPHATE
     Indication: Hypersensitivity
     Dosage: 15 MILLIGRAM, QD
     Route: 042
     Dates: start: 20220409, end: 20220411
  28. GLUTATHIONE [Concomitant]
     Active Substance: GLUTATHIONE
     Indication: Hepatitis viral
     Dosage: 2.4 GRAM, QD
     Route: 042
     Dates: start: 20220409, end: 20220417
  29. GLUTATHIONE [Concomitant]
     Active Substance: GLUTATHIONE
     Indication: Hepatic function abnormal
  30. GLUTATHIONE [Concomitant]
     Active Substance: GLUTATHIONE
     Indication: Hepatic steatosis
  31. NOCARDIA RUBRA CELL WALL SKELETON [Concomitant]
     Indication: Adjuvant therapy
     Dosage: 200 MICROGRAM
     Route: 042
     Dates: start: 20220411, end: 20220411
  32. ENTECAVIR [Concomitant]
     Active Substance: ENTECAVIR
     Indication: Hepatitis viral
     Dosage: 0.5 MILLIGRAM, QD
     Route: 048
     Dates: start: 20220406, end: 202204
  33. ENTECAVIR [Concomitant]
     Active Substance: ENTECAVIR
     Indication: Hepatic function abnormal
  34. ENTECAVIR [Concomitant]
     Active Substance: ENTECAVIR
     Indication: Hepatic steatosis
  35. PROPACETAMOL HYDROCHLORIDE [Concomitant]
     Active Substance: PROPACETAMOL HYDROCHLORIDE
     Indication: Pyrexia
     Dosage: 2 GRAM
     Route: 042
     Dates: start: 20220406, end: 20220406
  36. CYCLOPHOSPHAMIDE [Concomitant]
     Active Substance: CYCLOPHOSPHAMIDE
     Indication: Lymphoma
     Dosage: 1.35 GRAM
     Route: 042
     Dates: start: 20220412, end: 20220412
  37. DOXORUBICIN HYDROCHLORIDE [Concomitant]
     Active Substance: DOXORUBICIN HYDROCHLORIDE
     Indication: Lymphoma
     Dosage: 90 MILLIGRAM
     Route: 042
     Dates: start: 20220412, end: 20220412
  38. DEXRAZOXANE [Concomitant]
     Active Substance: DEXRAZOXANE
     Indication: Cardiotoxicity
     Dosage: 500 MILLIGRAM
     Route: 042
     Dates: start: 20220412, end: 20220412
  39. FOSAPREPITANT DIMEGLUMINE [Concomitant]
     Active Substance: FOSAPREPITANT DIMEGLUMINE
     Indication: Vomiting
     Dosage: 150 MILLIGRAM
     Route: 042
     Dates: start: 20220412, end: 20220412
  40. AMIFOSTINE [Concomitant]
     Active Substance: AMIFOSTINE
     Indication: Colony stimulating factor therapy
     Dosage: 0.8 GRAM
     Route: 042
     Dates: start: 20220412, end: 20220412
  41. MESNA [Concomitant]
     Active Substance: MESNA
     Indication: Detoxification
     Dosage: 0.4 GRAM, TID
     Route: 042
     Dates: start: 20220412, end: 20220412
  42. TORSEMIDE [Concomitant]
     Active Substance: TORSEMIDE
     Indication: Polyuria
     Dosage: 20 MILLIGRAM
     Route: 042
     Dates: start: 20220412, end: 20220412
  43. CALCIUM GLUCONATE [Concomitant]
     Active Substance: CALCIUM GLUCONATE
     Indication: Electrolyte substitution therapy
     Dosage: 20 MILLILITER
     Route: 042
     Dates: start: 20220412, end: 20220412
  44. PREDNISONE ACETATE [Concomitant]
     Active Substance: PREDNISONE ACETATE
     Indication: Lymphoma
     Dosage: 100 MILLIGRAM, QD
     Route: 048
     Dates: start: 20220412, end: 20220416

REACTIONS (9)
  - Drug-induced liver injury [Not Recovered/Not Resolved]
  - Myelosuppression [Not Recovered/Not Resolved]
  - Neurotoxicity [Recovered/Resolved]
  - Hypokalaemia [Recovered/Resolved]
  - Neutrophil count decreased [Recovered/Resolved]
  - Blood glucose increased [Recovered/Resolved]
  - Hypoalbuminaemia [Not Recovered/Not Resolved]
  - Hypocalcaemia [Recovered/Resolved]
  - Off label use [Unknown]

NARRATIVE: CASE EVENT DATE: 20220411
